FAERS Safety Report 23466700 (Version 2)
Quarter: 2024Q1

REPORT INFORMATION
  Report Type: Spontaneous
  Country: RU (occurrence: RU)
  Receive Date: 20240201
  Receipt Date: 20240202
  Transmission Date: 20240410
  Serious: Yes (Life-Threatening)
  Sender: FDA-Public Use
  Company Number: None

PATIENT
  Age: 50 Year
  Sex: Female
  Weight: 64 kg

DRUGS (10)
  1. APIDRA SOLOSTAR [Suspect]
     Active Substance: INSULIN GLULISINE
     Dosage: DOSAGE 40IU/80IU
     Route: 058
     Dates: start: 2023
  2. LOSARTAN [Concomitant]
     Active Substance: LOSARTAN
     Route: 048
  3. METOPROLOL [Concomitant]
     Active Substance: METOPROLOL
     Route: 048
  4. MOXONIDINE [Concomitant]
     Active Substance: MOXONIDINE
     Route: 048
  5. DOXAZOSIN [Concomitant]
     Active Substance: DOXAZOSIN MESYLATE
     Route: 048
  6. ATORVASTATIN [Concomitant]
     Active Substance: ATORVASTATIN
     Route: 048
  7. ALFACALCIDOL [Concomitant]
     Active Substance: ALFACALCIDOL
     Route: 048
  8. OMEPRAZOLE [Concomitant]
     Active Substance: OMEPRAZOLE
     Route: 048
  9. MYCOPHENOLIC ACID [Concomitant]
     Active Substance: MYCOPHENOLIC ACID
     Route: 048
  10. CYCLOSPORINE [Concomitant]
     Active Substance: CYCLOSPORINE
     Route: 048

REACTIONS (2)
  - Suspected product quality issue [Unknown]
  - Hyperglycaemia [Not Recovered/Not Resolved]

NARRATIVE: CASE EVENT DATE: 20230101
